FAERS Safety Report 6591088-0 (Version None)
Quarter: 2010Q1

REPORT INFORMATION
  Report Type: 
  Country: None (occurrence: None)
  Receive Date: 20100219
  Receipt Date: 20100210
  Transmission Date: 20100710
  Serious: Yes (Death, Hospitalization)
  Sender: FDA-Public Use
  Company Number: JP-WYE-H11606709

PATIENT
  Age: 74 Year
  Sex: Female

DRUGS (9)
  1. ANCARON [Suspect]
     Indication: ATRIAL FIBRILLATION
     Route: 048
     Dates: start: 20070622, end: 20090413
  2. HERBAL PREPARATION [Suspect]
     Indication: DRUG USE FOR UNKNOWN INDICATION
     Route: 048
     Dates: start: 20070821, end: 20090413
  3. VASOLAN [Concomitant]
     Dosage: DOSE UNKNOWN
     Route: 065
     Dates: start: 20070622, end: 20070918
  4. MEVALOTIN [Concomitant]
     Dosage: DOSE UNKOWN
     Route: 065
     Dates: start: 20070911, end: 20090413
  5. FRANDOL [Concomitant]
     Dosage: DOSE UNKNOWN
     Route: 065
     Dates: start: 20070428
  6. BLOPRESS [Concomitant]
     Dosage: DOSE UNKNOWN
     Route: 065
  7. CARDENALIN [Concomitant]
     Dosage: DOSE UNKNOWN
     Route: 065
     Dates: start: 20080702
  8. ASPIRIN [Suspect]
     Indication: ATRIAL FIBRILLATION
     Route: 048
     Dates: start: 20070822, end: 20090413
  9. AMLODIPINE BESYLATE [Concomitant]
     Dosage: DOSE UNKNOWN
     Route: 065
     Dates: start: 20080827

REACTIONS (3)
  - ASPERGILLOSIS [None]
  - CEREBRAL INFARCTION [None]
  - PULMONARY ALVEOLAR HAEMORRHAGE [None]
